FAERS Safety Report 8801245 (Version 1)
Quarter: 2012Q4

REPORT INFORMATION
  Report Type: 
  Country: TR (occurrence: TR)
  Receive Date: 20120921
  Receipt Date: 20120921
  Transmission Date: 20130627
  Serious: Yes (Other)
  Sender: FDA-Public Use
  Company Number: TR-WATSON-2012-16240

PATIENT
  Age: 4 Year
  Sex: Female

DRUGS (2)
  1. SERTRALINE HYDROCHLORIDE (UNKNOWN) [Suspect]
     Indication: OBSESSIVE-COMPULSIVE DISORDER
     Dosage: 50 mg, daily
     Route: 048
  2. SERTRALINE HYDROCHLORIDE (UNKNOWN) [Suspect]
     Dosage: 25 mg, daily
     Route: 048

REACTIONS (1)
  - Disinhibition [Recovered/Resolved]
